FAERS Safety Report 25423325 (Version 1)
Quarter: 2025Q2

REPORT INFORMATION
  Report Type: Spontaneous
  Country: US (occurrence: None)
  Receive Date: 20250611
  Receipt Date: 20250611
  Transmission Date: 20250717
  Serious: Yes (Hospitalization)
  Sender: FDA-CTU
  Company Number: None

PATIENT
  Age: 52 Year
  Sex: Male

DRUGS (1)
  1. IBUPROFEN [Suspect]
     Active Substance: IBUPROFEN
     Dates: start: 20250501, end: 20250501

REACTIONS (7)
  - Acute kidney injury [None]
  - Intentional overdose [None]
  - Lethargy [None]
  - Hypocalcaemia [None]
  - Hyperkalaemia [None]
  - Dialysis [None]
  - Pneumonia aspiration [None]

NARRATIVE: CASE EVENT DATE: 20250502
